FAERS Safety Report 7202369-1 (Version None)
Quarter: 2010Q4

REPORT INFORMATION
  Report Type: 
  Country: None (occurrence: None)
  Receive Date: 20101229
  Receipt Date: 20101213
  Transmission Date: 20110411
  Serious: No
  Sender: FDA-Public Use
  Company Number: US-PFIZER INC-2010172368

PATIENT
  Age: 63 Year
  Sex: Female

DRUGS (3)
  1. LIPITOR [Suspect]
     Dosage: UNK
  2. HYDROXYCHLOROQUINE SULFATE [Suspect]
     Dosage: UNK
  3. PLAVIX [Suspect]
     Dosage: UNK

REACTIONS (2)
  - LIMB DISCOMFORT [None]
  - RESTLESSNESS [None]
